FAERS Safety Report 19582554 (Version 1)
Quarter: 2021Q3

REPORT INFORMATION
  Report Type: Spontaneous
  Country: US (occurrence: US)
  Receive Date: 20210719
  Receipt Date: 20210719
  Transmission Date: 20211014
  Serious: No
  Sender: FDA-Public Use
  Company Number: US-GALDERMA-US2021012669

PATIENT

DRUGS (2)
  1. DIFFERIN GEL [Suspect]
     Active Substance: ADAPALENE
     Indication: ACNE CYSTIC
     Dosage: 1 DOSAGE FORM, QOD, SMALL AMOUNT EVERY OTHER DAY AT NIGHT
     Route: 061
     Dates: start: 2021
  2. MOISTURIZER [Concomitant]
     Active Substance: UNSPECIFIED INGREDIENT
     Indication: PRODUCT USED FOR UNKNOWN INDICATION
     Dosage: UNK
     Route: 061

REACTIONS (6)
  - Drug effective for unapproved indication [Recovered/Resolved]
  - Therapeutic response unexpected [Recovered/Resolved]
  - Condition aggravated [Unknown]
  - Acne cystic [Unknown]
  - Intentional underdose [Recovered/Resolved]
  - Intentional product misuse [Recovered/Resolved]

NARRATIVE: CASE EVENT DATE: 2021
